FAERS Safety Report 25253658 (Version 1)
Quarter: 2025Q2

REPORT INFORMATION
  Report Type: Spontaneous
  Country: BR (occurrence: BR)
  Receive Date: 20250430
  Receipt Date: 20250430
  Transmission Date: 20250717
  Serious: Yes (Other)
  Sender: ALEXION PHARMACEUTICALS
  Company Number: BR-ASTRAZENECA-202504SAM014989BR

PATIENT
  Age: 80 Year
  Weight: 85 kg

DRUGS (2)
  1. LYNPARZA [Suspect]
     Active Substance: OLAPARIB
     Indication: Breast cancer
     Dosage: 150 MILLIGRAM, QD, 4 TABLETS DAILY
     Route: 065
  2. GLIFAGE [Concomitant]
     Active Substance: METFORMIN HYDROCHLORIDE
     Route: 065

REACTIONS (4)
  - Anaemia [Recovering/Resolving]
  - Infected seroma [Recovered/Resolved]
  - Fatigue [Recovered/Resolved]
  - Postoperative wound infection [Recovered/Resolved]
